FAERS Safety Report 17886037 (Version 1)
Quarter: 2020Q2

REPORT INFORMATION
  Report Type: Report from Study
  Country: US (occurrence: US)
  Receive Date: 20200611
  Receipt Date: 20200611
  Transmission Date: 20200714
  Serious: Yes (Death, Hospitalization)
  Sender: FDA-Public Use
  Company Number: US-ACTELION-A-US2012-62948

PATIENT
  Age: 3 Year
  Sex: Female

DRUGS (7)
  1. LASIX [Concomitant]
     Active Substance: FUROSEMIDE
     Dosage: 8.5 MG, BID
     Route: 048
     Dates: start: 201107
  2. TADALAFIL. [Concomitant]
     Active Substance: TADALAFIL
     Dosage: 15 MG, QD
     Route: 048
     Dates: start: 201212
  3. ASPIRIN. [Concomitant]
     Active Substance: ASPIRIN
     Dosage: 40.5 MG, UNK
     Dates: start: 201107
  4. TRACLEER [Suspect]
     Active Substance: BOSENTAN
     Indication: PULMONARY ARTERIAL HYPERTENSION
     Dosage: 31.25 MG, BID
     Route: 048
     Dates: start: 201112
  5. ALBUTEROL. [Concomitant]
     Active Substance: ALBUTEROL
     Dosage: 1-2 PUFFS, Q4H, PRN
     Dates: start: 201107
  6. REVATIO [Concomitant]
     Active Substance: SILDENAFIL CITRATE
  7. FLOVENT [Concomitant]
     Active Substance: FLUTICASONE PROPIONATE
     Dosage: 2 PUFF, BID
     Dates: start: 201107

REACTIONS (4)
  - Nasopharyngitis [Unknown]
  - Death [Fatal]
  - Respiratory tract congestion [Unknown]
  - Nasal congestion [Unknown]

NARRATIVE: CASE EVENT DATE: 201203
